FAERS Safety Report 11248303 (Version 1)
Quarter: 2015Q3

REPORT INFORMATION
  Report Type: Spontaneous
  Country: US (occurrence: US)
  Receive Date: 20150708
  Receipt Date: 20150708
  Transmission Date: 20151125
  Serious: Yes (Death, Other)
  Sender: FDA-Public Use
  Company Number: US-ELI_LILLY_AND_COMPANY-US200710003147

PATIENT
  Age: 53 Year
  Sex: Male

DRUGS (2)
  1. PROZAC [Suspect]
     Active Substance: FLUOXETINE HYDROCHLORIDE
     Indication: ANXIETY
     Dosage: UNK, UNK
     Dates: start: 2006
  2. WELLBUTRIN [Concomitant]
     Active Substance: BUPROPION HYDROCHLORIDE

REACTIONS (9)
  - Tremor [Unknown]
  - Feeling of body temperature change [Unknown]
  - Dyskinesia [Unknown]
  - Serotonin syndrome [Fatal]
  - Hyperthermia [Unknown]
  - Somnolence [Unknown]
  - Muscle rigidity [Unknown]
  - Muscle twitching [Unknown]
  - Fatigue [Unknown]

NARRATIVE: CASE EVENT DATE: 200706
